FAERS Safety Report 7067869 (Version 4)
Quarter: 2020Q3

REPORT INFORMATION
  Report Type: Report from Study
  Country: US (occurrence: US)
  Receive Date: 20090730
  Receipt Date: 20091013
  Transmission Date: 20201104
  Serious: Yes (Hospitalization)
  Sender: FDA-Public Use
  Company Number: US-WYE-H10335909

PATIENT
  Age: 70 Year
  Sex: Male
  Weight: 96.7 kg

DRUGS (2)
  1. TEMSIROLIMUS. [Suspect]
     Active Substance: TEMSIROLIMUS
     Indication: RENAL CELL CARCINOMA
     Route: 042
     Dates: start: 20090415
  2. BEVACIZUMAB. [Suspect]
     Active Substance: BEVACIZUMAB
     Indication: RENAL CELL CARCINOMA
     Route: 042
     Dates: start: 20090415

REACTIONS (2)
  - Urinary retention [Recovered/Resolved]
  - Perirectal abscess [Recovered/Resolved]

NARRATIVE: CASE EVENT DATE: 20090723
